FAERS Safety Report 4790525-1 (Version None)
Quarter: 2005Q3

REPORT INFORMATION
  Report Type: 
  Country: None (occurrence: None)
  Receive Date: 20050914
  Receipt Date: 20041228
  Transmission Date: 20060218
  Serious: Yes (Hospitalization)
  Sender: FDA-Public Use
  Company Number: 163-20785-04120623

PATIENT
  Age: 72 Year
  Sex: Female

DRUGS (2)
  1. THALOMID [Suspect]
     Indication: MULTIPLE MYELOMA
     Dosage: 50 MG, DAILY, THREE WEEKS ON AND ONE WEEK OFF, ORAL
     Route: 048
     Dates: start: 20040831, end: 20041101
  2. DEXAMETHASONE [Suspect]
     Indication: MULTIPLE MYELOMA
     Dosage: 20 MG, DAILY, THREE WEEKS ON AND ONE WEEK OFF, ORAL
     Route: 048
     Dates: start: 20040801, end: 20041101

REACTIONS (2)
  - CONSTIPATION [None]
  - LARGE INTESTINE PERFORATION [None]
